FAERS Safety Report 24006625 (Version 2)
Quarter: 2025Q1

REPORT INFORMATION
  Report Type: Spontaneous
  Country: US (occurrence: None)
  Receive Date: 20240624
  Receipt Date: 20250310
  Transmission Date: 20250409
  Serious: Yes (Death, Life-Threatening, Other)
  Sender: INCYTE
  Company Number: US-002147023-NVSC2024US130036

PATIENT
  Age: 55 Year

DRUGS (1)
  1. JAKAFI [Suspect]
     Active Substance: RUXOLITINIB
     Indication: Graft versus host disease
     Route: 065

REACTIONS (6)
  - Cough [Fatal]
  - Fatigue [Fatal]
  - Pyrexia [Fatal]
  - Pneumocystis jirovecii pneumonia [Fatal]
  - Dyspnoea [Fatal]
  - Septic shock [Fatal]
